FAERS Safety Report 5574970-2 (Version None)
Quarter: 2007Q4

REPORT INFORMATION
  Report Type: 
  Country: None (occurrence: None)
  Receive Date: 20071227
  Receipt Date: 20071219
  Transmission Date: 20080405
  Serious: Yes (Other)
  Sender: FDA-Public Use
  Company Number: B0500336A

PATIENT
  Age: 39 Year
  Sex: Male

DRUGS (3)
  1. COMBIVIR [Suspect]
     Indication: HIV INFECTION
     Route: 065
  2. INDINIVIR SULFATE [Concomitant]
  3. EFAVIRENZ [Concomitant]
     Indication: HIV INFECTION

REACTIONS (1)
  - LIPOATROPHY [None]
